FAERS Safety Report 8234108-X (Version None)
Quarter: 2012Q1

REPORT INFORMATION
  Report Type: 
  Country: None (occurrence: None)
  Receive Date: 20120326
  Receipt Date: 20120326
  Transmission Date: 20120608
  Serious: No
  Sender: FDA-Public Use
  Company Number: None

PATIENT
  Age: 75 Year
  Sex: Female
  Weight: 79.378 kg

DRUGS (2)
  1. RECLAST [Suspect]
     Indication: DRUG INTOLERANCE
     Route: 041
     Dates: start: 20110301, end: 20110301
  2. RECLAST [Suspect]
     Indication: ULCER
     Route: 041
     Dates: start: 20110301, end: 20110301

REACTIONS (5)
  - MUSCLE DISORDER [None]
  - PAIN IN EXTREMITY [None]
  - ACTIVITIES OF DAILY LIVING IMPAIRED [None]
  - BODY TEMPERATURE INCREASED [None]
  - GAIT DISTURBANCE [None]
